FAERS Safety Report 8962768 (Version 4)
Quarter: 2013Q3

REPORT INFORMATION
  Report Type: Spontaneous
  Country: IT (occurrence: IT)
  Receive Date: 20121214
  Receipt Date: 20130905
  Transmission Date: 20140515
  Serious: Yes (Hospitalization)
  Sender: FDA-Public Use
  Company Number: IT-JNJFOC-20121204463

PATIENT
  Age: 62 Year
  Sex: Female

DRUGS (4)
  1. PALEXIA [Suspect]
     Indication: NEURALGIA
     Route: 048
     Dates: start: 20120801, end: 20120819
  2. MICARDIS [Concomitant]
     Indication: PRODUCT USED FOR UNKNOWN INDICATION
     Route: 048
  3. CRESTOR [Concomitant]
     Indication: PRODUCT USED FOR UNKNOWN INDICATION
     Route: 048
  4. MEDROL [Concomitant]
     Indication: PRODUCT USED FOR UNKNOWN INDICATION
     Route: 048

REACTIONS (2)
  - Intestinal obstruction [Recovered/Resolved]
  - Malocclusion [Recovered/Resolved]
